FAERS Safety Report 8611701-3 (Version None)
Quarter: 2012Q3

REPORT INFORMATION
  Report Type: 
  Country: None (occurrence: None)
  Receive Date: 20120822
  Receipt Date: 20120808
  Transmission Date: 20120928
  Serious: Yes (Hospitalization, Other)
  Sender: FDA-Public Use
  Company Number: JP-ROCHE-1091027

PATIENT
  Sex: Male
  Weight: 72 kg

DRUGS (8)
  1. PYDOXAL [Concomitant]
     Route: 048
     Dates: start: 20120203
  2. IRINOTECAN HYDROCHLORIDE [Concomitant]
     Indication: RECTAL CANCER RECURRENT
     Route: 041
     Dates: start: 20120203, end: 20120302
  3. IRINOTECAN HYDROCHLORIDE [Concomitant]
     Route: 041
     Dates: start: 20120330
  4. TS-1 [Concomitant]
     Indication: RECTAL CANCER RECURRENT
     Route: 048
     Dates: start: 20120203, end: 20120706
  5. IRINOTECAN HYDROCHLORIDE [Concomitant]
     Route: 041
     Dates: start: 20120427, end: 20120706
  6. AVASTIN [Suspect]
     Indication: RECTAL CANCER RECURRENT
     Route: 041
     Dates: start: 20120203, end: 20120706
  7. PROMAC [Concomitant]
     Route: 048
     Dates: start: 20120203
  8. TAMSULOSIN HCL [Concomitant]
     Route: 048
     Dates: start: 20120203

REACTIONS (3)
  - HAEMORRHAGE [None]
  - WOUND HAEMORRHAGE [None]
  - PERINEAL PAIN [None]
